FAERS Safety Report 16582893 (Version 6)
Quarter: 2019Q3

REPORT INFORMATION
  Report Type: Report from Study
  Country: LB (occurrence: LB)
  Receive Date: 20190717
  Receipt Date: 20190830
  Transmission Date: 20191004
  Serious: Yes (Hospitalization, Disabling, Other)
  Sender: FDA-Public Use
  Company Number: LB-ROCHE-2354406

PATIENT
  Age: 75 Year
  Sex: Male
  Weight: 110 kg

DRUGS (6)
  1. LUCENTIS [Suspect]
     Active Substance: RANIBIZUMAB
     Route: 031
     Dates: start: 20190527
  2. MIXTARD [INSULIN HUMAN;INSULIN HUMAN INJECTION, ISOPHANE] [Concomitant]
     Indication: PRODUCT USED FOR UNKNOWN INDICATION
     Route: 058
  3. JANUMET [Concomitant]
     Active Substance: METFORMIN HYDROCHLORIDE\SITAGLIPTIN PHOSPHATE
     Indication: PRODUCT USED FOR UNKNOWN INDICATION
     Route: 048
  4. TRUSOPT [Concomitant]
     Active Substance: DORZOLAMIDE HYDROCHLORIDE
     Indication: PRODUCT USED FOR UNKNOWN INDICATION
     Route: 065
  5. INSULIN [Concomitant]
     Active Substance: INSULIN NOS
     Indication: DIABETES MELLITUS
     Route: 065
  6. LUCENTIS [Suspect]
     Active Substance: RANIBIZUMAB
     Indication: DIABETIC RETINAL OEDEMA
     Dosage: 10 MG, QMO (RETINAL)
     Route: 031
     Dates: start: 20190424

REACTIONS (13)
  - Dry mouth [Unknown]
  - Vision blurred [Not Recovered/Not Resolved]
  - Pyrexia [Unknown]
  - Abdominal pain [Unknown]
  - Oedema [Unknown]
  - Fatigue [Unknown]
  - Swelling [Unknown]
  - Retinal haemorrhage [Recovered/Resolved]
  - Dyspnoea [Unknown]
  - Vomiting [Unknown]
  - Oedema peripheral [Recovering/Resolving]
  - Localised infection [Recovered/Resolved with Sequelae]
  - Polyuria [Unknown]

NARRATIVE: CASE EVENT DATE: 20190424
